FAERS Safety Report 5922573-X (Version None)
Quarter: 2008Q3

REPORT INFORMATION
  Report Type: 
  Country: None (occurrence: None)
  Receive Date: 20080909
  Receipt Date: 20080521
  Transmission Date: 20090109
  Serious: Yes (Life-Threatening, Hospitalization)
  Sender: FDA-Public Use
  Company Number: 163-20785-05070311

PATIENT
  Age: 50 Year
  Sex: Male

DRUGS (4)
  1. THALOMID [Suspect]
     Indication: MULTIPLE MYELOMA
     Dosage: 200 MG, QHS, ORAL; 100 MG, 1 IN 1 D, ORAL
     Route: 048
     Dates: start: 20050608, end: 20050701
  2. THALOMID [Suspect]
     Indication: MULTIPLE MYELOMA
     Dosage: 200 MG, QHS, ORAL; 100 MG, 1 IN 1 D, ORAL
     Route: 048
     Dates: start: 20050705
  3. DEXAMETHASONE [Suspect]
     Indication: MULTIPLE MYELOMA
     Dosage: 40 MG, DAILY X4 DAYS, Q2 WEEKS, ORAL
     Route: 048
     Dates: start: 20050608, end: 20050701
  4. DEXAMETHASONE [Suspect]
     Indication: MULTIPLE MYELOMA
     Dosage: 40 MG, DAILY X4 DAYS, Q2 WEEKS, ORAL
     Route: 048
     Dates: start: 20050701

REACTIONS (7)
  - BRADYCARDIA [None]
  - CHEST PAIN [None]
  - DEEP VEIN THROMBOSIS [None]
  - DYSPNOEA [None]
  - OEDEMA PERIPHERAL [None]
  - PAIN IN EXTREMITY [None]
  - PULMONARY EMBOLISM [None]
